FAERS Safety Report 15574494 (Version 2)
Quarter: 2019Q1

REPORT INFORMATION
  Report Type: Spontaneous
  Country: US (occurrence: US)
  Receive Date: 20181101
  Receipt Date: 20190122
  Transmission Date: 20190417
  Serious: Yes (Other)
  Sender: FDA-Public Use
  Company Number: US-AMGEN-USASP2018151311

PATIENT
  Age: 80 Year
  Sex: Female
  Weight: 57.78 kg

DRUGS (1)
  1. PROLIA [Suspect]
     Active Substance: DENOSUMAB
     Indication: OSTEOPOROSIS
     Dosage: UNK
     Route: 065
     Dates: start: 2017

REACTIONS (5)
  - Contusion [Recovered/Resolved]
  - Neuropathy peripheral [Recovered/Resolved]
  - Hypercalcaemia [Recovered/Resolved]
  - Memory impairment [Unknown]
  - Laboratory test abnormal [Unknown]

NARRATIVE: CASE EVENT DATE: 20181025
